FAERS Safety Report 4590330-5 (Version None)
Quarter: 2005Q1

REPORT INFORMATION
  Report Type: 
  Country: None (occurrence: None)
  Receive Date: 20050217
  Receipt Date: 20050210
  Transmission Date: 20050727
  Serious: Yes (Hospitalization)
  Sender: FDA-Public Use
  Company Number: TPA2005A00167

PATIENT
  Age: 80 Year
  Sex: Male
  Weight: 98.4306 kg

DRUGS (8)
  1. ACTOS [Suspect]
     Indication: DIABETES MELLITUS NON-INSULIN-DEPENDENT
     Dosage: 45 MG, 1 IN 1 D, PER ORAL
     Route: 048
     Dates: start: 20040810
  2. GLIPIZIDE [Concomitant]
  3. METFORMIN HCL [Concomitant]
  4. WARFARIN SODIUM [Concomitant]
  5. ENALAPRIL MALEATE [Concomitant]
  6. LIPITOR [Concomitant]
  7. LANOXIN [Concomitant]
  8. TYLENOL [Concomitant]

REACTIONS (2)
  - CONDITION AGGRAVATED [None]
  - MITRAL VALVE PROLAPSE [None]
